FAERS Safety Report 19137437 (Version 1)
Quarter: 2021Q2

REPORT INFORMATION
  Report Type: Spontaneous
  Country: DE (occurrence: DE)
  Receive Date: 20210414
  Receipt Date: 20210414
  Transmission Date: 20210717
  Serious: Yes (Hospitalization)
  Sender: FDA-Public Use
  Company Number: DE-TEVA-2021-DE-1899119

PATIENT
  Age: 65 Year
  Sex: Male

DRUGS (10)
  1. METOPROLOL. [Concomitant]
     Active Substance: METOPROLOL
     Dosage: .5 DOSAGE FORMS DAILY; 23.75 MG, 0?0?0.5?0
  2. FOLSAURE [Concomitant]
     Active Substance: FOLIC ACID
     Dosage: 5 MG / WEEK, 1X ON FRIDAY
  3. TIM?OPHTAL 0,25% [Concomitant]
     Dosage: 1 GTT DAILY; 1?0?0?0, DROPS
     Route: 047
  4. OLUMIANT [Concomitant]
     Active Substance: BARICITINIB
     Dosage: 4 MILLIGRAM DAILY; 1?0?0?0
  5. TAFLOT [Concomitant]
     Dosage: 1 GTT DAILY; 0?0?1?0, DROPS
     Route: 047
  6. CLOPIDOGREL [Concomitant]
     Active Substance: CLOPIDOGREL BISULFATE
     Dosage: 75 MILLIGRAM DAILY; 1?0?0?0
  7. MTX [Suspect]
     Active Substance: METHOTREXATE SODIUM
     Dosage: 15 MG / WEEK, 1X THURSDAY
     Route: 065
  8. SIMVASTATIN. [Concomitant]
     Active Substance: SIMVASTATIN
     Dosage: 10 MILLIGRAM DAILY; 0?0?1?0
  9. ASS 100 [Concomitant]
     Active Substance: ASPIRIN
     Dosage: 100 MILLIGRAM DAILY; 0?1?0?0
  10. PREDNISOLON [Concomitant]
     Active Substance: PREDNISOLONE
     Dosage: REQUIREMENT

REACTIONS (2)
  - Dyspnoea exertional [Recovered/Resolved]
  - Angina pectoris [Recovered/Resolved]
